FAERS Safety Report 14970449 (Version 1)
Quarter: 2018Q2

REPORT INFORMATION
  Report Type: Spontaneous
  Country: US (occurrence: US)
  Receive Date: 20180604
  Receipt Date: 20180604
  Transmission Date: 20180711
  Serious: No
  Sender: FDA-Public Use
  Company Number: US-ALLERGAN-1820344US

PATIENT
  Sex: Male

DRUGS (3)
  1. KYBELLA [Suspect]
     Active Substance: DEOXYCHOLIC ACID
     Dosage: 3 VIALS, SINGLE
     Route: 058
     Dates: start: 20171208, end: 20171208
  2. KYBELLA [Suspect]
     Active Substance: DEOXYCHOLIC ACID
     Dosage: 3 VIALS, SINGLE
     Route: 058
     Dates: start: 20180119, end: 20180119
  3. KYBELLA [Suspect]
     Active Substance: DEOXYCHOLIC ACID
     Indication: PRODUCT USED FOR UNKNOWN INDICATION
     Dosage: 4 VIALS, SINGLE
     Route: 058
     Dates: start: 20171020, end: 20171020

REACTIONS (1)
  - Drug ineffective [Unknown]
